FAERS Safety Report 21718465 (Version 2)
Quarter: 2023Q2

REPORT INFORMATION
  Report Type: Report from Study
  Country: US (occurrence: US)
  Receive Date: 20221212
  Receipt Date: 20230510
  Transmission Date: 20230721
  Serious: No
  Sender: FDA-Public Use
  Company Number: US-ABBVIE-4233137

PATIENT
  Sex: Male

DRUGS (1)
  1. IMBRUVICA [Suspect]
     Active Substance: IBRUTINIB
     Indication: Chronic lymphocytic leukaemia
     Dosage: TIME INTERVAL: 0.33333333 DAYS
     Route: 048
     Dates: start: 20200108

REACTIONS (5)
  - Arthralgia [Unknown]
  - Respiratory tract infection [Unknown]
  - Red blood cell count decreased [Unknown]
  - Upper respiratory tract infection [Unknown]
  - Myalgia [Unknown]
